FAERS Safety Report 24727828 (Version 1)
Quarter: 2024Q4

REPORT INFORMATION
  Report Type: Spontaneous
  Country: US (occurrence: None)
  Receive Date: 20241212
  Receipt Date: 20241212
  Transmission Date: 20250114
  Serious: Yes (Hospitalization)
  Sender: Public
  Company Number: None

PATIENT
  Age: 35 Year
  Sex: Female
  Weight: 87 kg

DRUGS (1)
  1. SEMAGLUTIDE [Suspect]
     Active Substance: SEMAGLUTIDE
     Indication: Diabetes mellitus
     Dosage: OTHER FREQUENCY : OTHER;?
     Route: 058
     Dates: start: 20240131

REACTIONS (4)
  - Agitation [None]
  - Depression [None]
  - Suicide attempt [None]
  - Diabetes mellitus inadequate control [None]

NARRATIVE: CASE EVENT DATE: 20240422
